FAERS Safety Report 15814640 (Version 2)
Quarter: 2019Q2

REPORT INFORMATION
  Report Type: Spontaneous
  Country: US (occurrence: US)
  Receive Date: 20190111
  Receipt Date: 20190627
  Transmission Date: 20190711
  Serious: No
  Sender: FDA-Public Use
  Company Number: US-SA-2019SA006245

PATIENT
  Age: 55 Year
  Sex: Female

DRUGS (15)
  1. NALTREXONE [Concomitant]
     Active Substance: NALTREXONE
  2. DUPIXENT [Suspect]
     Active Substance: DUPILUMAB
     Indication: ASTHMA
     Dosage: 300 MG, QOW
     Route: 058
     Dates: start: 20161201
  3. ALENDRONATE [Concomitant]
     Active Substance: ALENDRONATE SODIUM
  4. TUDORZA PRESSAIR [Concomitant]
     Active Substance: ACLIDINIUM BROMIDE
  5. PAROXETINE. [Concomitant]
     Active Substance: PAROXETINE
  6. SYMBICORT [Concomitant]
     Active Substance: BUDESONIDE\FORMOTEROL FUMARATE DIHYDRATE
  7. AMOXICILLIN CLAVULANIC ACID [Concomitant]
     Active Substance: AMOXICILLIN\CLAVULANIC ACID
  8. TOPIRAMATE. [Concomitant]
     Active Substance: TOPIRAMATE
  9. APRACLONIDINE [Concomitant]
     Active Substance: APRACLONIDINE HYDROCHLORIDE
  10. DUPIXENT [Suspect]
     Active Substance: DUPILUMAB
     Dosage: 300 MG, QOW
     Dates: start: 2017, end: 201802
  11. GABAPENTIN. [Concomitant]
     Active Substance: GABAPENTIN
  12. DUPIXENT [Suspect]
     Active Substance: DUPILUMAB
     Dosage: 600 MG, 1X
     Dates: start: 20161226, end: 20161226
  13. DUPIXENT [Suspect]
     Active Substance: DUPILUMAB
     Dosage: UNK
     Dates: start: 201812
  14. PREDNISONE. [Concomitant]
     Active Substance: PREDNISONE
  15. CLOBETASOL [Concomitant]
     Active Substance: CLOBETASOL

REACTIONS (3)
  - Eye swelling [Unknown]
  - Periorbital oedema [Not Recovered/Not Resolved]
  - Sinus headache [Unknown]

NARRATIVE: CASE EVENT DATE: 20180102
